FAERS Safety Report 10689909 (Version 2)
Quarter: 2015Q1

REPORT INFORMATION
  Report Type: Report from Study
  Country: US (occurrence: US)
  Receive Date: 20150105
  Receipt Date: 20150105
  Transmission Date: 20150720
  Serious: Yes (Hospitalization, Other)
  Sender: FDA-Public Use
  Company Number: PHEH2014US025258

PATIENT
  Age: 54 Year
  Sex: Female
  Weight: 72.7 kg

DRUGS (23)
  1. ZORTRESS [Suspect]
     Active Substance: EVEROLIMUS
     Indication: LUNG TRANSPLANT
     Dosage: 0.25 MG, BID
     Route: 048
     Dates: start: 20140814, end: 20141203
  2. SULFAMETHIZOLE W/TRIMETHOPRIM [Concomitant]
     Active Substance: SULFAMETHOXAZOLE\TRIMETHOPRIM
     Indication: PRODUCT USED FOR UNKNOWN INDICATION
     Dosage: 0.5 DF(800-160), UNK
     Route: 048
     Dates: start: 20140725
  3. MAGNESIUM OXIDE. [Concomitant]
     Active Substance: MAGNESIUM OXIDE
     Indication: PRODUCT USED FOR UNKNOWN INDICATION
     Dosage: 1 DF, BID
     Route: 048
  4. VALCYTE [Concomitant]
     Active Substance: VALGANCICLOVIR HYDROCHLORIDE
     Indication: PRODUCT USED FOR UNKNOWN INDICATION
     Dosage: 1 DF, QD
     Route: 048
     Dates: start: 20140725
  5. LYRICA [Concomitant]
     Active Substance: PREGABALIN
     Indication: PRODUCT USED FOR UNKNOWN INDICATION
     Dosage: 1 DF, BID
     Route: 048
     Dates: start: 20141016
  6. OMEPRAZOLE. [Concomitant]
     Active Substance: OMEPRAZOLE
     Indication: PRODUCT USED FOR UNKNOWN INDICATION
     Dosage: 1 DF, BID
     Route: 048
  7. VORICONAZOLE. [Concomitant]
     Active Substance: VORICONAZOLE
     Indication: PRODUCT USED FOR UNKNOWN INDICATION
     Dosage: 1 DF, Q12H
     Route: 048
     Dates: start: 20130522
  8. TACROLIMUS. [Concomitant]
     Active Substance: TACROLIMUS
     Indication: IMMUNOSUPPRESSION
     Route: 065
  9. POLYETHYLENE GLYCOL [Concomitant]
     Active Substance: POLYETHYLENE GLYCOLS
     Indication: PRODUCT USED FOR UNKNOWN INDICATION
     Dosage: 1 DF, QD AS REQUIRED
     Route: 048
  10. PREDNISONE. [Concomitant]
     Active Substance: PREDNISONE
     Indication: IMMUNOSUPPRESSION
     Dosage: 1 DF, QD
     Route: 048
     Dates: start: 20141113
  11. VFEND [Concomitant]
     Active Substance: VORICONAZOLE
     Indication: PRODUCT USED FOR UNKNOWN INDICATION
     Dosage: 1 DF, Q12H
     Route: 048
     Dates: start: 20141126
  12. VITAMIN D [Concomitant]
     Active Substance: CHOLECALCIFEROL
     Indication: PRODUCT USED FOR UNKNOWN INDICATION
     Dosage: 2 DF, DAILY
     Route: 048
     Dates: start: 20141124
  13. ZORTRESS [Suspect]
     Active Substance: EVEROLIMUS
     Dosage: 0.25 MG, BID
     Route: 048
     Dates: start: 20141207
  14. AZITHROMYCIN [Concomitant]
     Active Substance: AZITHROMYCIN ANHYDROUS
     Indication: PRODUCT USED FOR UNKNOWN INDICATION
     Dosage: 1 DF, MONDAY, WEDNESDAY, FRIDAY
     Route: 048
  15. ATORVASTATIN CALCIUM. [Concomitant]
     Active Substance: ATORVASTATIN CALCIUM
     Indication: PRODUCT USED FOR UNKNOWN INDICATION
     Dosage: 1 DF, QD
     Route: 048
  16. CALCIUM [Concomitant]
     Active Substance: CALCIUM
     Indication: PRODUCT USED FOR UNKNOWN INDICATION
     Dosage: 1 DF, BID
     Route: 065
     Dates: start: 20130524
  17. WARFARIN SODIUM. [Concomitant]
     Active Substance: WARFARIN SODIUM
     Indication: PRODUCT USED FOR UNKNOWN INDICATION
     Dosage: 1 DF, QD
     Route: 048
     Dates: start: 20141113
  18. METOPROLOL TARTRATE. [Concomitant]
     Active Substance: METOPROLOL TARTRATE
     Indication: PRODUCT USED FOR UNKNOWN INDICATION
     Dosage: 1 DF, BID
     Route: 048
  19. ADVAIR HFA [Concomitant]
     Active Substance: FLUTICASONE PROPIONATE\SALMETEROL XINAFOATE
     Indication: PRODUCT USED FOR UNKNOWN INDICATION
     Dosage: 250-50 UG, BID
     Route: 055
     Dates: start: 20130524
  20. COLACE [Concomitant]
     Active Substance: DOCUSATE SODIUM
     Indication: PRODUCT USED FOR UNKNOWN INDICATION
     Dosage: 1 DF, BID
     Route: 048
  21. NYSTATIN. [Concomitant]
     Active Substance: NYSTATIN
     Indication: PRODUCT USED FOR UNKNOWN INDICATION
     Dosage: 5 ML, BID
     Route: 065
     Dates: start: 20131015
  22. PRENATAL [Concomitant]
     Active Substance: VITAMINS
     Indication: PRODUCT USED FOR UNKNOWN INDICATION
     Dosage: 1 DF, QD
     Route: 048
  23. VITAMIN D3 [Concomitant]
     Active Substance: CHOLECALCIFEROL
     Indication: PRODUCT USED FOR UNKNOWN INDICATION
     Dosage: 1 DF, QW
     Route: 048
     Dates: start: 20141124

REACTIONS (38)
  - Complications of transplanted lung [Recovering/Resolving]
  - Hiatus hernia [Recovering/Resolving]
  - Chest pain [Recovering/Resolving]
  - Osteoporosis [Recovering/Resolving]
  - Fatigue [Recovering/Resolving]
  - Myalgia [Recovered/Resolved]
  - Dyspnoea exertional [Recovered/Resolved]
  - Lymphadenopathy [Recovering/Resolving]
  - Muscular weakness [Recovering/Resolving]
  - Dysarthria [Recovered/Resolved]
  - Chills [Recovered/Resolved]
  - Vomiting [Recovering/Resolving]
  - Pain in extremity [Recovering/Resolving]
  - Acute kidney injury [Recovered/Resolved]
  - Toxicity to various agents [Recovered/Resolved]
  - Constipation [Recovering/Resolving]
  - Abdominal pain [Recovering/Resolving]
  - Insomnia [Recovering/Resolving]
  - Vitamin D deficiency [Recovering/Resolving]
  - Tachycardia [Recovering/Resolving]
  - Hypoxia [Recovered/Resolved]
  - Neuropathy peripheral [Recovering/Resolving]
  - Urinary retention [Recovering/Resolving]
  - Anxiety [Recovering/Resolving]
  - Leukopenia [Recovering/Resolving]
  - Chronic respiratory failure [Recovering/Resolving]
  - Postoperative ileus [Recovering/Resolving]
  - Pulmonary embolism [Recovering/Resolving]
  - Dyspepsia [Recovering/Resolving]
  - Upper respiratory tract infection [Recovering/Resolving]
  - Diarrhoea [Recovering/Resolving]
  - Pleural effusion [Recovering/Resolving]
  - Viral infection [Recovered/Resolved]
  - Pyrexia [Recovered/Resolved]
  - Dyspnoea [Recovered/Resolved]
  - Peripheral swelling [Recovering/Resolving]
  - Nausea [Recovering/Resolving]
  - Pulmonary hypertension [Recovering/Resolving]

NARRATIVE: CASE EVENT DATE: 20141203
